FAERS Safety Report 19185873 (Version 1)
Quarter: 2021Q2

REPORT INFORMATION
  Report Type: Spontaneous
  Country: FR (occurrence: FR)
  Receive Date: 20210427
  Receipt Date: 20210427
  Transmission Date: 20210717
  Serious: Yes (Hospitalization)
  Sender: FDA-Public Use
  Company Number: FR-BAUSCH-BL-2021-013589

PATIENT
  Age: 74 Year
  Sex: Male
  Weight: 92 kg

DRUGS (19)
  1. PIPERACILLIN/TAZOBACTAM [Suspect]
     Active Substance: PIPERACILLIN SODIUM\TAZOBACTAM SODIUM
     Indication: ERYSIPELAS
     Dosage: 8 G, DAILY
     Route: 042
     Dates: start: 20190731, end: 20190802
  2. VITAMIN D3 [Concomitant]
     Active Substance: CHOLECALCIFEROL
     Indication: PRODUCT USED FOR UNKNOWN INDICATION
     Dosage: 1 DF, EVERY 3 MONTHS (AMPOULES)
  3. SEVELAMER [Concomitant]
     Active Substance: SEVELAMER
     Indication: PRODUCT USED FOR UNKNOWN INDICATION
     Dosage: 1 DF, 2X/DAY
  4. DIFFU K [Concomitant]
     Active Substance: POTASSIUM CHLORIDE
     Indication: PRODUCT USED FOR UNKNOWN INDICATION
     Dosage: 1 DF, 3X/DAY
  5. TAZOBACTAM [Suspect]
     Active Substance: TAZOBACTAM
     Indication: ERYSIPELAS
     Route: 042
     Dates: start: 20190731, end: 20190802
  6. PIPERACILLINE BASE [Suspect]
     Active Substance: PIPERACILLIN SODIUM
     Indication: ERYSIPELAS
     Route: 042
     Dates: start: 20190731, end: 20190802
  7. FLUINDIONE [Concomitant]
     Active Substance: FLUINDIONE
     Indication: PRODUCT USED FOR UNKNOWN INDICATION
     Dosage: 20 MG, 1X/DAY (IN THE EVENING)
  8. GENTAMICINE [Suspect]
     Active Substance: GENTAMICIN
     Indication: ERYSIPELAS
     Dosage: 320 MG, SINGLE, IN TOTAL
     Route: 042
     Dates: start: 20190731, end: 20190731
  9. SITAGLIPTIN [Concomitant]
     Active Substance: SITAGLIPTIN
     Indication: PRODUCT USED FOR UNKNOWN INDICATION
     Dosage: 50 MG, DAILY
  10. DALACINE [Suspect]
     Active Substance: CLINDAMYCIN
     Indication: ERYSIPELAS
     Dosage: 600 MG, 3X/DAY
     Route: 042
     Dates: start: 20190726, end: 20190731
  11. FUROSEMID [Concomitant]
     Active Substance: FUROSEMIDE
     Indication: PRODUCT USED FOR UNKNOWN INDICATION
     Dosage: 500 MG, DAILY (1?1?0.5)
  12. BISOPROLOL [Concomitant]
     Active Substance: BISOPROLOL
     Indication: PRODUCT USED FOR UNKNOWN INDICATION
     Dosage: 2.5 MG, 3X/DAY
  13. PENICILLINE G PANPHARMA [Suspect]
     Active Substance: PENICILLIN G SODIUM
     Indication: ERYSIPELAS
     Dosage: 6 MILLION IU, DAILY
     Route: 042
     Dates: start: 20190802, end: 20190809
  14. ORACILLINE [PHENOXYMETHYLPENICILLIN] [Concomitant]
     Active Substance: PENICILLIN V
     Indication: PRODUCT USED FOR UNKNOWN INDICATION
     Dosage: 1 MILLION IU, 2X/DAY (MORNING AND EVENING)
  15. DALACINE [Suspect]
     Active Substance: CLINDAMYCIN
     Dosage: 1800 MG, DAILY
     Route: 042
     Dates: start: 20190805, end: 20190809
  16. RAMIPRIL. [Concomitant]
     Active Substance: RAMIPRIL
     Indication: PRODUCT USED FOR UNKNOWN INDICATION
     Dosage: 2.5 MG, 1X/DAY (IN THE EVENING)
  17. LEVEMIR [Concomitant]
     Active Substance: INSULIN DETEMIR
     Indication: PRODUCT USED FOR UNKNOWN INDICATION
     Dosage: 15 IU, DAILY
  18. REPAGLINIDE. [Concomitant]
     Active Substance: REPAGLINIDE
     Indication: PRODUCT USED FOR UNKNOWN INDICATION
     Dosage: 3X/DAY (2 MG 1?2?2)
  19. ALLOPURINOL. [Concomitant]
     Active Substance: ALLOPURINOL
     Indication: PRODUCT USED FOR UNKNOWN INDICATION
     Dosage: 200 MG, DAILY

REACTIONS (1)
  - Rash maculo-papular [Recovered/Resolved]

NARRATIVE: CASE EVENT DATE: 20190809
